FAERS Safety Report 14820740 (Version 1)
Quarter: 2018Q2

REPORT INFORMATION
  Report Type: Spontaneous
  Country: GB (occurrence: GB)
  Receive Date: 20180427
  Receipt Date: 20180427
  Transmission Date: 20180711
  Serious: Yes (Other)
  Sender: FDA-Public Use
  Company Number: GB-AUROBINDO-AUR-APL-2018-022532

PATIENT
  Age: 53 Year
  Sex: Female

DRUGS (1)
  1. DULOXETINE. [Suspect]
     Active Substance: DULOXETINE
     Indication: PRODUCT USED FOR UNKNOWN INDICATION
     Route: 065

REACTIONS (8)
  - Withdrawal syndrome [Unknown]
  - Bedridden [Unknown]
  - Sleep terror [Unknown]
  - Dizziness [Unknown]
  - Cerebral disorder [Unknown]
  - Diarrhoea [Unknown]
  - Gait inability [Unknown]
  - Sight disability [Unknown]
